FAERS Safety Report 4502763-3 (Version None)
Quarter: 2004Q4

REPORT INFORMATION
  Report Type: 
  Country: None (occurrence: None)
  Receive Date: 20041116
  Receipt Date: 20041109
  Transmission Date: 20050328
  Serious: Yes (Other)
  Sender: FDA-Public Use
  Company Number: US-MERCK-0411USA01734

PATIENT
  Age: 53 Year
  Sex: Male

DRUGS (5)
  1. VIOXX [Suspect]
     Indication: ARTHRITIS
     Route: 048
  2. ACCUPRIL [Concomitant]
     Route: 065
  3. TRAZODONE HYDROCHLORIDE [Concomitant]
     Route: 065
  4. PAXIL [Concomitant]
     Route: 065
  5. [THERAPY UNSPECIFIED] [Concomitant]
     Route: 065

REACTIONS (2)
  - AMNESIA [None]
  - MYOCARDIAL INFARCTION [None]
